FAERS Safety Report 4417835-1 (Version None)
Quarter: 2004Q2

REPORT INFORMATION
  Report Type: 
  Country: None (occurrence: None)
  Receive Date: 20040621
  Receipt Date: 20040224
  Transmission Date: 20050107
  Serious: Yes (Other)
  Sender: FDA-Public Use
  Company Number: 2004013003

PATIENT
  Age: 16 Year
  Sex: Male
  Weight: 75 kg

DRUGS (3)
  1. VFEND [Suspect]
     Indication: BRONCHOPULMONARY ASPERGILLOSIS ALLERGIC
     Dosage: 200 MG (DAILY)
     Dates: start: 20031001
  2. ALL OTHER THERAPEUTIC PRODUCTS (ALL OTHER THERAPEUTIC PRODUCTS) [Concomitant]
  3. ANTI-ASTHMATICS (ANTI-ASTHMATICS) [Concomitant]

REACTIONS (2)
  - ASPERGILLOSIS [None]
  - DERMATITIS EXFOLIATIVE [None]
